FAERS Safety Report 4403667-7 (Version None)
Quarter: 2004Q3

REPORT INFORMATION
  Report Type: 
  Country: None (occurrence: None)
  Receive Date: 20040721
  Receipt Date: 20040712
  Transmission Date: 20050211
  Serious: Yes (Other)
  Sender: FDA-Public Use
  Company Number: JP-ROCHE-374265

PATIENT
  Age: 61 Year
  Sex: Female
  Weight: 46 kg

DRUGS (8)
  1. VESANOID [Suspect]
     Indication: ACUTE PROMYELOCYTIC LEUKAEMIA
     Route: 048
     Dates: start: 20011228, end: 20020430
  2. THYRADIN S [Suspect]
     Route: 065
  3. ITRIZOLE [Suspect]
     Route: 065
  4. DAUNOMYCIN [Concomitant]
     Dates: start: 20011225, end: 20020101
  5. SUNRABIN [Concomitant]
     Dates: start: 20010615, end: 20020101
  6. REMINARON [Concomitant]
     Dates: start: 20011227, end: 20020116
  7. CARBENIN [Concomitant]
     Dates: start: 20011227
  8. TOBRACIN [Concomitant]
     Dates: start: 20011227

REACTIONS (6)
  - AUTOIMMUNE THYROIDITIS [None]
  - DISSEMINATED INTRAVASCULAR COAGULATION [None]
  - DRUG ERUPTION [None]
  - FUNGAEMIA [None]
  - HYPOTHYROIDISM [None]
  - NEUROGENIC BLADDER [None]
